FAERS Safety Report 6881475-5 (Version None)
Quarter: 2010Q3

REPORT INFORMATION
  Report Type: 
  Country: None (occurrence: None)
  Receive Date: 20100728
  Receipt Date: 20100723
  Transmission Date: 20110219
  Serious: Yes (Hospitalization)
  Sender: FDA-Public Use
  Company Number: DE-BRISTOL-MYERS SQUIBB COMPANY-15139975

PATIENT
  Age: 80 Year
  Sex: Female
  Weight: 66 kg

DRUGS (2)
  1. HYDROXYUREA [Suspect]
     Indication: ESSENTIAL THROMBOCYTHAEMIA
     Dosage: 26MAY
     Route: 048
  2. LEVOFLOXACIN [Suspect]

REACTIONS (4)
  - ALVEOLITIS [None]
  - ATRIAL FIBRILLATION [None]
  - LUNG INFILTRATION [None]
  - TACHYARRHYTHMIA [None]
